FAERS Safety Report 6381383-2 (Version None)
Quarter: 2009Q3

REPORT INFORMATION
  Report Type: 
  Country: None (occurrence: None)
  Receive Date: 20090924
  Receipt Date: 20090917
  Transmission Date: 20100115
  Serious: Yes (Hospitalization)
  Sender: FDA-Public Use
  Company Number: 2009SP025947

PATIENT
  Age: 70 Year
  Sex: Male

DRUGS (6)
  1. MIRTAZAPINE [Suspect]
     Indication: DEPRESSION
     Dosage: 15 MG;QD;PO
     Route: 048
     Dates: start: 20090914, end: 20090915
  2. SERTRALINE HYDROCHLORIDE [Concomitant]
  3. TRIAZOLAM [Concomitant]
  4. FLUNITRAZEPAM [Concomitant]
  5. TRAZODONE HYDROCHLORIDE [Concomitant]
  6. SULPIRIDE [Concomitant]

REACTIONS (2)
  - BLOOD CREATINE PHOSPHOKINASE INCREASED [None]
  - PYREXIA [None]
